FAERS Safety Report 7368845-6 (Version None)
Quarter: 2011Q1

REPORT INFORMATION
  Report Type: 
  Country: None (occurrence: None)
  Receive Date: 20110323
  Receipt Date: 20110318
  Transmission Date: 20110831
  Serious: Yes (Death, Hospitalization)
  Sender: FDA-Public Use
  Company Number: FR-B.I. PHARMACEUTICALS,INC./RIDGEFIELD-2011-FF-00270FF

PATIENT
  Sex: Male

DRUGS (1)
  1. PRADAXA [Suspect]
     Route: 048

REACTIONS (7)
  - INTRAVENTRICULAR HAEMORRHAGE [None]
  - HEAD INJURY [None]
  - MENINGORRHAGIA [None]
  - BRAIN HERNIATION [None]
  - FALL [None]
  - COMA [None]
  - SUBDURAL HAEMATOMA [None]
